FAERS Safety Report 8794662 (Version 1)
Quarter: 2012Q4

REPORT INFORMATION
  Report Type: 
  Country: US (occurrence: US)
  Receive Date: 20120917
  Receipt Date: 20120917
  Transmission Date: 20130627
  Serious: No
  Sender: FDA-Public Use
  Company Number: US-VERTEX PHARMACEUTICAL INC.-2012-019882

PATIENT
  Sex: Female
  Weight: 75 kg

DRUGS (3)
  1. VX-950 [Suspect]
     Indication: HEPATITIS C
     Dosage: 750 mg, tid
     Route: 048
     Dates: start: 20120525
  2. PEG INTRON [Concomitant]
     Indication: HEPATITIS C
     Dosage: 120 ?g, UNK
     Route: 058
     Dates: start: 20120525
  3. RIBASPHERE [Concomitant]
     Indication: HEPATITIS C
     Dosage: UNK
     Route: 048
     Dates: start: 20120525

REACTIONS (7)
  - Anal fistula [Unknown]
  - Anaemia [Unknown]
  - Haemorrhoids [Unknown]
  - Anorectal discomfort [Unknown]
  - Pruritus [Unknown]
  - Nausea [Unknown]
  - Vomiting [Unknown]
